FAERS Safety Report 16289362 (Version 1)
Quarter: 2019Q2

REPORT INFORMATION
  Report Type: Spontaneous
  Country: US (occurrence: US)
  Receive Date: 20190403
  Receipt Date: 20190403
  Transmission Date: 20190711
  Serious: No
  Sender: FDA-Public Use
  Company Number: None

PATIENT
  Age: 53 Year
  Sex: Female

DRUGS (1)
  1. ENBREL [Suspect]
     Active Substance: ETANERCEPT
     Indication: ARTHRITIS
     Route: 058
     Dates: start: 201801

REACTIONS (4)
  - Injection site inflammation [None]
  - Device malfunction [None]
  - Injection site bruising [None]
  - Product quality issue [None]

NARRATIVE: CASE EVENT DATE: 20190330
